FAERS Safety Report 8763056 (Version 1)
Quarter: 2012Q4

REPORT INFORMATION
  Report Type: Spontaneous
  Country: US (occurrence: None)
  Receive Date: 20120830
  Receipt Date: 20120830
  Transmission Date: 20130627
  Serious: Yes (Life-Threatening)
  Sender: FDA-Public Use
  Company Number: None

PATIENT
  Age: 74 Year
  Sex: Female
  Weight: 70.76 kg

DRUGS (1)
  1. AMLODIPINE [Suspect]
     Dosage: 1 TABLET QD PO
     Route: 048
     Dates: start: 20120810, end: 20120817

REACTIONS (5)
  - Blood pressure fluctuation [None]
  - Dizziness [None]
  - Gait disturbance [None]
  - Fear [None]
  - Product substitution issue [None]
